FAERS Safety Report 10150766 (Version 1)
Quarter: 2014Q2

REPORT INFORMATION
  Report Type: Spontaneous
  Country: US (occurrence: US)
  Receive Date: 20140502
  Receipt Date: 20140502
  Transmission Date: 20141212
  Serious: No
  Sender: FDA-Public Use
  Company Number: US-ASTRAZENECA-2013SE47703

PATIENT
  Age: 42 Year
  Sex: Female

DRUGS (2)
  1. PRILOSEC OTC, WILDBERRY FLAVOR [Suspect]
     Route: 048
     Dates: end: 20130612
  2. CONTRACEPTIVES NOS [Concomitant]
     Dosage: UNKNOWN

REACTIONS (3)
  - Throat irritation [Recovered/Resolved]
  - Hypoaesthesia oral [Recovered/Resolved]
  - Intentional product misuse [Unknown]
